FAERS Safety Report 5179691-6 (Version None)
Quarter: 2006Q4

REPORT INFORMATION
  Report Type: 
  Country: None (occurrence: None)
  Receive Date: 20061212
  Receipt Date: 20061201
  Transmission Date: 20070319
  Serious: Yes (Death)
  Sender: FDA-Public Use
  Company Number: 200612AGG00524

PATIENT
  Age: 84 Year
  Sex: Female

DRUGS (4)
  1. TIROFIBAN [Suspect]
     Indication: ANGINA UNSTABLE
     Dosage: INTRAVENOUS (ICH 042)
     Route: 042
     Dates: start: 20060822
  2. CLOPIDOGREL BISULFATE [Concomitant]
  3. HEPARIN LOW MOLECULAR WEIGHT [Concomitant]
  4. METFORMIN HCL [Concomitant]

REACTIONS (1)
  - DEATH [None]
